FAERS Safety Report 7132960-2 (Version None)
Quarter: 2010Q4

REPORT INFORMATION
  Report Type: 
  Country: None (occurrence: None)
  Receive Date: 20101202
  Receipt Date: 20101019
  Transmission Date: 20110411
  Serious: Yes (Death, Other)
  Sender: FDA-Public Use
  Company Number: US-BAXTER-2010BH001628

PATIENT
  Age: 88 Year
  Sex: Male

DRUGS (16)
  1. HEPARIN SODIUM INJECTION [Suspect]
     Indication: HAEMODIALYSIS
     Route: 040
     Dates: start: 20080111, end: 20080118
  2. HEPARIN SODIUM INJECTION [Suspect]
     Route: 040
     Dates: start: 20080111, end: 20080118
  3. HEPARIN SODIUM INJECTION [Suspect]
     Route: 040
     Dates: start: 20070501
  4. HEPARIN SODIUM INJECTION [Suspect]
     Route: 040
     Dates: start: 20080111, end: 20080118
  5. HEPARIN SODIUM INJECTION [Suspect]
     Route: 040
     Dates: start: 20080111, end: 20080118
  6. HEPARIN SODIUM INJECTION [Suspect]
     Route: 040
     Dates: start: 20080111, end: 20080118
  7. ATENOLOL [Concomitant]
     Indication: PRODUCT USED FOR UNKNOWN INDICATION
     Route: 065
  8. FISH OIL [Concomitant]
     Indication: PRODUCT USED FOR UNKNOWN INDICATION
     Route: 065
  9. ZANTAC [Concomitant]
     Indication: PRODUCT USED FOR UNKNOWN INDICATION
     Route: 065
  10. PERSANTINE [Concomitant]
     Indication: PRODUCT USED FOR UNKNOWN INDICATION
     Route: 065
  11. LACTULOSE [Concomitant]
     Indication: PRODUCT USED FOR UNKNOWN INDICATION
     Route: 065
  12. FOLIC ACID [Concomitant]
     Indication: PRODUCT USED FOR UNKNOWN INDICATION
     Route: 065
  13. NEPHROCAPS [Concomitant]
     Indication: PRODUCT USED FOR UNKNOWN INDICATION
     Route: 065
  14. EPINEPHRINE [Concomitant]
     Indication: PRODUCT USED FOR UNKNOWN INDICATION
     Route: 065
  15. ATROPINE [Concomitant]
     Indication: PRODUCT USED FOR UNKNOWN INDICATION
     Route: 065
  16. NORMAL SALINE [Concomitant]
     Indication: LOSS OF CONSCIOUSNESS
     Route: 040
     Dates: start: 20080118, end: 20080118

REACTIONS (5)
  - CARDIAC ARREST [None]
  - CHEST PAIN [None]
  - HYPOTENSION [None]
  - LOSS OF CONSCIOUSNESS [None]
  - MALAISE [None]
